FAERS Safety Report 22819824 (Version 2)
Quarter: 2025Q3

REPORT INFORMATION
  Report Type: Spontaneous
  Country: US (occurrence: US)
  Receive Date: 20230814
  Receipt Date: 20250901
  Transmission Date: 20251021
  Serious: No
  Sender: SANOFI AVENTIS
  Company Number: US-SA-SAC20230810000274

PATIENT
  Age: 68 Year
  Sex: Female

DRUGS (1)
  1. DUPIXENT [Suspect]
     Active Substance: DUPILUMAB
     Indication: Dermatitis atopic
     Dosage: 300 MG, QOW
     Route: 058
     Dates: start: 20230208

REACTIONS (8)
  - Pain [Unknown]
  - Sleep disorder [Unknown]
  - Scratch [Unknown]
  - Wound [Unknown]
  - Haemorrhage [Unknown]
  - Sleep disorder due to a general medical condition [Not Recovered/Not Resolved]
  - Pruritus [Unknown]
  - Therapeutic product effect decreased [Unknown]

NARRATIVE: CASE EVENT DATE: 20230101
